FAERS Safety Report 12624822 (Version 2)
Quarter: 2017Q3

REPORT INFORMATION
  Report Type: Report from Study
  Country: ZA (occurrence: ZA)
  Receive Date: 20160805
  Receipt Date: 20170807
  Transmission Date: 20171127
  Serious: Yes (Other)
  Sender: FDA-Public Use
  Company Number: PHHY2016ZA107186

PATIENT
  Sex: Female

DRUGS (1)
  1. ACLASTA [Suspect]
     Active Substance: ZOLEDRONIC ACID
     Indication: OSTEOPOROSIS
     Dosage: 1 DF (5/100 MG/ML), Q12MO
     Route: 041
     Dates: start: 2014

REACTIONS (2)
  - Headache [Recovered/Resolved with Sequelae]
  - Facial paralysis [Recovered/Resolved]
